FAERS Safety Report 21993270 (Version 1)
Quarter: 2023Q1

REPORT INFORMATION
  Report Type: Spontaneous
  Country: FR (occurrence: FR)
  Receive Date: 20230215
  Receipt Date: 20230215
  Transmission Date: 20230418
  Serious: Yes (Life-Threatening, Other)
  Sender: FDA-Public Use
  Company Number: FR-AFSSAPS-LY2023000167

PATIENT
  Age: 85 Year
  Sex: Male
  Weight: 72 kg

DRUGS (10)
  1. AMOXICILLIN [Suspect]
     Active Substance: AMOXICILLIN
     Indication: Enterococcal bacteraemia
     Dosage: 12 GRAM, ONCE A DAY
     Route: 042
     Dates: start: 20221219, end: 20230111
  2. ATORVASTATIN [Concomitant]
     Active Substance: ATORVASTATIN
     Indication: Product used for unknown indication
     Dosage: UNK
     Route: 065
  3. AZITHROMYCIN [Concomitant]
     Active Substance: AZITHROMYCIN
     Indication: Product used for unknown indication
     Dosage: UNK
     Route: 065
  4. BROMURO DE TIOTROPIO [Concomitant]
     Indication: Product used for unknown indication
     Dosage: UNK
     Route: 065
  5. CEFTRIAXONE [Concomitant]
     Active Substance: CEFTRIAXONE
     Indication: Enterococcal bacteraemia
     Dosage: 4 GRAM, ONCE A DAY
     Route: 042
     Dates: start: 20221219
  6. BUDESONIDE\FORMOTEROL [Concomitant]
     Active Substance: BUDESONIDE\FORMOTEROL
     Indication: Product used for unknown indication
     Dosage: UNK
     Route: 065
  7. POTASSIUM CHLORIDE [Concomitant]
     Active Substance: POTASSIUM CHLORIDE
     Indication: Product used for unknown indication
     Dosage: UNK
     Route: 065
  8. ELIQUIS [Concomitant]
     Active Substance: APIXABAN
     Indication: Product used for unknown indication
     Dosage: UNK
     Route: 065
  9. FUROSEMIDE [Concomitant]
     Active Substance: FUROSEMIDE
     Indication: Product used for unknown indication
     Dosage: UNK
     Route: 065
  10. IRBESARTAN [Concomitant]
     Active Substance: IRBESARTAN
     Indication: Product used for unknown indication
     Dosage: UNK
     Route: 065

REACTIONS (2)
  - Acute kidney injury [Recovering/Resolving]
  - Crystalluria [Recovering/Resolving]

NARRATIVE: CASE EVENT DATE: 20230107
